FAERS Safety Report 7800009-1 (Version None)
Quarter: 2011Q4

REPORT INFORMATION
  Report Type: 
  Country: None (occurrence: None)
  Receive Date: 20111006
  Receipt Date: 20111003
  Transmission Date: 20120403
  Serious: Yes (Other)
  Sender: FDA-Public Use
  Company Number: CHPA2011US13588

PATIENT
  Age: 59 Year
  Sex: Female

DRUGS (3)
  1. ALCOHOL [Suspect]
  2. DOAN'S EXTRA STRENGTH [Suspect]
     Dosage: 2 DF, ONCE/SINGLE
     Route: 048
     Dates: start: 20111002, end: 20111002
  3. DOAN'S EXTRA STRENGTH [Suspect]
     Indication: BACK PAIN
     Dosage: 2 DF, BID
     Route: 048
     Dates: start: 20111002, end: 20111002

REACTIONS (7)
  - HAEMATOCHEZIA [None]
  - ASTHENIA [None]
  - DRUG INEFFECTIVE [None]
  - PSYCHOMOTOR HYPERACTIVITY [None]
  - DEFAECATION URGENCY [None]
  - EXPIRED DRUG ADMINISTERED [None]
  - DIARRHOEA [None]
